FAERS Safety Report 17300934 (Version 1)
Quarter: 2020Q1

REPORT INFORMATION
  Report Type: Spontaneous
  Country: US (occurrence: US)
  Receive Date: 20200122
  Receipt Date: 20200122
  Transmission Date: 20200409
  Serious: No
  Sender: FDA-Public Use
  Company Number: US-PFIZER INC-2020028344

PATIENT

DRUGS (2)
  1. ZOLOFT [Suspect]
     Active Substance: SERTRALINE HYDROCHLORIDE
     Dosage: UNK, ALTERNATE DAY(TAKE IT EVERY OTHER DAY FOR A WEEK)
     Dates: start: 202001
  2. ZOLOFT [Suspect]
     Active Substance: SERTRALINE HYDROCHLORIDE
     Dosage: UNK

REACTIONS (2)
  - Headache [Unknown]
  - Irritability [Unknown]

NARRATIVE: CASE EVENT DATE: 202001
